FAERS Safety Report 25962629 (Version 1)
Quarter: 2025Q4

REPORT INFORMATION
  Report Type: Spontaneous
  Country: US (occurrence: US)
  Receive Date: 20251027
  Receipt Date: 20251027
  Transmission Date: 20260117
  Serious: No
  Sender: ABBVIE
  Company Number: US-ABBVIE-6518302

PATIENT
  Sex: Female

DRUGS (2)
  1. RESTASIS [Suspect]
     Active Substance: CYCLOSPORINE
     Indication: Dry eye
     Dosage: ONE EVERY MORNING
     Route: 047
     Dates: end: 2025
  2. RESTASIS [Suspect]
     Active Substance: CYCLOSPORINE
     Dosage: ONE EVERY MORNING
     Route: 047
     Dates: start: 20251018

REACTIONS (1)
  - Lacrimation increased [Unknown]

NARRATIVE: CASE EVENT DATE: 20251001
